FAERS Safety Report 9164037 (Version 4)
Quarter: 2013Q2

REPORT INFORMATION
  Report Type: Spontaneous
  Country: JP (occurrence: JP)
  Receive Date: 20130314
  Receipt Date: 20130605
  Transmission Date: 20140414
  Serious: Yes (Life-Threatening, Other)
  Sender: FDA-Public Use
  Company Number: JP-009507513-1303JPN005454

PATIENT
  Age: 8 Year
  Sex: Male
  Weight: 22 kg

DRUGS (13)
  1. DEXAMETHASONE [Suspect]
     Indication: ACUTE LYMPHOCYTIC LEUKAEMIA RECURRENT
     Dosage: 1.5 MG, TID
     Route: 048
  2. METHOTREXATE [Suspect]
     Indication: ACUTE LYMPHOCYTIC LEUKAEMIA RECURRENT
     Dosage: UNK
     Route: 065
     Dates: start: 20081117
  3. VINCRISTINE SULFATE [Suspect]
     Indication: ACUTE LYMPHOCYTIC LEUKAEMIA RECURRENT
     Dosage: UNK
     Route: 042
     Dates: start: 20081117
  4. CEFMETAZON [Concomitant]
     Dosage: 1800 MG, QD
     Route: 042
     Dates: start: 20081107, end: 20081112
  5. SOLDEM 1 [Concomitant]
     Dosage: 2000 ML, QD
     Route: 041
     Dates: start: 20081107, end: 20090128
  6. MEYLON [Concomitant]
     Dosage: 6.72 G, QD
     Route: 041
     Dates: start: 20081107, end: 20091125
  7. ZYLORIC [Concomitant]
     Dosage: 200 MG, QD
     Route: 048
     Dates: start: 20081107
  8. POLYMYXIN B SULFATE [Concomitant]
     Dosage: 2 MILLION IU, QD
     Route: 048
     Dates: start: 20081114, end: 20090123
  9. BAKTAR [Concomitant]
     Dosage: 2 G, QD
     Route: 048
     Dates: start: 20081114
  10. FAMOTIDINE [Concomitant]
     Dosage: 20 MG, QD
     Route: 048
     Dates: start: 20081111
  11. PENTCILLIN [Concomitant]
     Dosage: 1500 MG, QD
     Route: 042
     Dates: start: 20081113, end: 20081120
  12. SAXIZON [Concomitant]
     Dosage: UNK
     Route: 042
     Dates: start: 20081116
  13. NEO-MINOPHAGEN C [Concomitant]
     Dosage: 20 ML, QD
     Route: 042
     Dates: start: 20081117, end: 20081206

REACTIONS (2)
  - Hepatic vein occlusion [Recovered/Resolved]
  - Disseminated intravascular coagulation [Recovered/Resolved]
